FAERS Safety Report 4382663-2 (Version None)
Quarter: 2004Q2

REPORT INFORMATION
  Report Type: 
  Country: None (occurrence: None)
  Receive Date: 20040622
  Receipt Date: 20040610
  Transmission Date: 20050107
  Serious: Yes (Other)
  Sender: FDA-Public Use
  Company Number: 361491

PATIENT
  Age: 71 Year
  Sex: Male

DRUGS (6)
  1. QUERTO [Suspect]
     Indication: HYPERTENSION
     Dosage: 25MG PER DAY
     Route: 048
     Dates: start: 20040215
  2. EUNERPAN [Suspect]
     Indication: RESTLESSNESS
     Dosage: 30MG PER DAY
     Route: 048
     Dates: start: 20040215
  3. MARCUMAR [Suspect]
     Dosage: 3MG PER DAY
     Route: 048
  4. RULID [Suspect]
     Indication: BRONCHOPNEUMONIA
     Dosage: 300MG PER DAY
     Route: 048
     Dates: start: 20040301, end: 20040310
  5. MUCOSOLVAN [Suspect]
     Indication: DRUG USE FOR UNKNOWN INDICATION
     Route: 065
  6. SORTIS [Concomitant]
     Route: 065

REACTIONS (2)
  - DRUG INTERACTION [None]
  - INTERNATIONAL NORMALISED RATIO INCREASED [None]
